FAERS Safety Report 6731372-0 (Version None)
Quarter: 2010Q2

REPORT INFORMATION
  Report Type: 
  Country: None (occurrence: None)
  Receive Date: 20100518
  Receipt Date: 20100518
  Transmission Date: 20101027
  Serious: Yes (Death)
  Sender: FDA-Public Use
  Company Number: None

PATIENT
  Sex: Male
  Weight: 78 kg

DRUGS (5)
  1. SODIUM STIBOGLUCONATE [Suspect]
     Indication: MALIGNANT MELANOMA
     Dosage: 228MG DAILY 4/12-4/15/10 IV
     Route: 042
     Dates: start: 20100412, end: 20100415
  2. INTERFERON [Concomitant]
  3. CISPLATIN [Concomitant]
  4. VINBLASTINE SULFATE [Concomitant]
  5. PIC [Concomitant]

REACTIONS (1)
  - CEREBROVASCULAR ACCIDENT [None]
